FAERS Safety Report 4462452-0 (Version None)
Quarter: 2004Q3

REPORT INFORMATION
  Report Type: 
  Country: None (occurrence: None)
  Receive Date: 20040928
  Receipt Date: 20040415
  Transmission Date: 20050211
  Serious: Yes (Other)
  Sender: FDA-Public Use
  Company Number: CIP04000835

PATIENT
  Sex: 0

DRUGS (1)
  1. ACTONEL [Suspect]
     Dosage: ORAL
     Route: 048

REACTIONS (17)
  - ANOREXIA [None]
  - DIARRHOEA [None]
  - FATIGUE [None]
  - FEELING ABNORMAL [None]
  - LOWER RESPIRATORY TRACT INFECTION [None]
  - LUNG CREPITATION [None]
  - MOUTH ULCERATION [None]
  - ORAL PAIN [None]
  - PETECHIAE [None]
  - PROCTALGIA [None]
  - PURPURA SENILE [None]
  - RASH [None]
  - SCAB [None]
  - SKIN LESION [None]
  - STEVENS-JOHNSON SYNDROME [None]
  - WEIGHT DECREASED [None]
  - WHEEZING [None]
